FAERS Safety Report 24120036 (Version 3)
Quarter: 2024Q3

REPORT INFORMATION
  Report Type: Spontaneous
  Country: ES (occurrence: ES)
  Receive Date: 20240722
  Receipt Date: 20240809
  Transmission Date: 20241016
  Serious: Yes (Hospitalization, Other)
  Sender: PFIZER
  Company Number: ES-BAXTER-2024BAX021346

PATIENT
  Age: 63 Year
  Sex: Female
  Weight: 53.6 kg

DRUGS (7)
  1. EPIRUBICIN HYDROCHLORIDE [Suspect]
     Active Substance: EPIRUBICIN HYDROCHLORIDE
     Indication: Malignant fibrous histiocytoma
     Dosage: 50 MG/M2/D, EVERY 3 WEEKS
     Route: 042
     Dates: start: 20240507, end: 20240619
  2. IFOSFAMIDE [Suspect]
     Active Substance: IFOSFAMIDE
     Dosage: 2.5 G/M2/D, EVERY 3 WEEKS
     Route: 042
     Dates: start: 20240507, end: 20240620
  3. OPDIVO [Suspect]
     Active Substance: NIVOLUMAB
     Indication: Malignant fibrous histiocytoma
     Dosage: 360 MG, EVERY 3 WEEKS, BMS-936558
     Route: 042
     Dates: start: 20240507, end: 20240620
  4. ENOXAPARIN [Concomitant]
     Active Substance: ENOXAPARIN
     Indication: Anticoagulant therapy
     Dosage: UNK
     Route: 058
     Dates: start: 2024, end: 2024
  5. FENTANYL [Concomitant]
     Active Substance: FENTANYL\FENTANYL CITRATE
     Indication: Pain
     Dosage: UNK
     Route: 061
     Dates: start: 20240613
  6. METOCLOPRAMIDE [Concomitant]
     Active Substance: METOCLOPRAMIDE
     Indication: Antiemetic supportive care
     Dosage: UNK
     Route: 048
     Dates: start: 20240613
  7. FILGRASTIM [Concomitant]
     Active Substance: FILGRASTIM
     Indication: Prophylaxis
     Dosage: UNK
     Route: 058
     Dates: start: 20240622, end: 20240628

REACTIONS (3)
  - Cough [Unknown]
  - Pyrexia [Unknown]
  - Pancytopenia [Recovered/Resolved]

NARRATIVE: CASE EVENT DATE: 20240628
